FAERS Safety Report 4690034-4 (Version None)
Quarter: 2005Q2

REPORT INFORMATION
  Report Type: 
  Country: None (occurrence: None)
  Receive Date: 20050614
  Receipt Date: 20050531
  Transmission Date: 20051028
  Serious: Yes (Other)
  Sender: FDA-Public Use
  Company Number: 2005073245

PATIENT
  Sex: Female

DRUGS (7)
  1. ZYVOX [Suspect]
     Indication: STAPHYLOCOCCAL INFECTION
     Dosage: 1200 MG (600 MG, 2 IN 1 D), ORAL
     Route: 048
     Dates: start: 20050408, end: 20050426
  2. INSULIN GLARGINE (INSULIN GLARGINE) [Concomitant]
  3. MESALAZINE (MEZALAZINE) [Concomitant]
  4. OMEPRAZOLE [Concomitant]
  5. ACTRAPID (INSULIN) [Concomitant]
  6. JEVITY (CORN OIL, ELECTROLYTES NOS, FATTY ACIDS NOS, MINERALS NOS, POT [Concomitant]
  7. ALL OTHER THERAPEUTIC PRODUCTS (ALL OTHR THERAPEUTIC PRODUCTS) [Concomitant]

REACTIONS (1)
  - DRUG INEFFECTIVE [None]
